FAERS Safety Report 6844818-4 (Version None)
Quarter: 2010Q3

REPORT INFORMATION
  Report Type: 
  Country: None (occurrence: None)
  Receive Date: 20100715
  Receipt Date: 20100708
  Transmission Date: 20110219
  Serious: Yes (Death, Other)
  Sender: FDA-Public Use
  Company Number: JP-PFIZER INC-2010084889

PATIENT
  Age: 82 Year
  Sex: Male

DRUGS (27)
  1. ZYVOX [Suspect]
     Indication: SEPSIS
     Dosage: 1200 MG/DAY
     Route: 042
     Dates: start: 20100531, end: 20100610
  2. CLINDAMYCIN PHOSPHATE [Suspect]
     Indication: SEPSIS
     Dosage: 1800 MG, 1X/DAY
     Route: 041
     Dates: start: 20100530, end: 20100531
  3. CEFTRIAXONE [Suspect]
     Dosage: 2 G, 1X/DAY
     Route: 041
     Dates: start: 20100526, end: 20100528
  4. AMIODARONE [Suspect]
     Indication: ATRIAL FIBRILLATION
     Dosage: 200 MG, 1X/DAY
     Route: 048
     Dates: start: 20100426, end: 20100530
  5. LANSOPRAZOLE [Suspect]
     Indication: GASTRITIS
     Dosage: 30 MG, 1X/DAY
     Route: 048
     Dates: start: 20100501, end: 20100616
  6. LASIX [Suspect]
     Indication: CARDIAC FAILURE CONGESTIVE
     Dosage: UNK
     Route: 041
     Dates: start: 20100503, end: 20100616
  7. ARTIST [Suspect]
     Indication: CARDIAC FAILURE CONGESTIVE
     Dosage: 1.25 MG, 1X/DAY
     Route: 048
     Dates: start: 20100518, end: 20100616
  8. ACARDI [Suspect]
     Indication: CARDIAC FAILURE CONGESTIVE
     Dosage: 2.5 MG, 1X/DAY
     Route: 048
     Dates: start: 20100519, end: 20100616
  9. VANCOMYCIN [Suspect]
     Indication: SEPSIS
     Dosage: 2000 MG, 1X/DAY
     Route: 041
     Dates: start: 20100528, end: 20100531
  10. GASTER [Suspect]
     Indication: GASTRITIS
     Dosage: 20 MG, 1X/DAY
     Route: 041
     Dates: start: 20100530, end: 20100609
  11. SOL-MELCORT [Suspect]
     Indication: INTERSTITIAL LUNG DISEASE
     Dosage: 1000 MG, 1X/DAY
     Route: 041
     Dates: start: 20100531, end: 20100602
  12. FUNGUARD [Suspect]
     Indication: FUNGAL INFECTION
     Dosage: 75 MG, 1X/DAY
     Route: 041
     Dates: start: 20100601, end: 20100611
  13. WARFARIN [Concomitant]
     Indication: ATRIAL FIBRILLATION
     Dosage: UNK
     Route: 048
     Dates: end: 20100530
  14. TRIAZOLAM [Concomitant]
     Indication: INSOMNIA
     Dosage: 0.25 MG, 1X/DAY
     Route: 048
     Dates: end: 20100609
  15. MAGMITT [Concomitant]
     Indication: CONSTIPATION
     Dosage: 990 MG, 1X/DAY
     Route: 048
     Dates: end: 20100609
  16. SENNOSIDE A+B [Concomitant]
     Indication: CONSTIPATION
     Dosage: 24 MG, 1X/DAY
     Route: 048
     Dates: end: 20100616
  17. VENECTOMIN [Concomitant]
     Indication: CARDIAC FAILURE CONGESTIVE
     Dosage: UNK
     Route: 042
     Dates: start: 20100501, end: 20100615
  18. DOBUTAMINE HYDROCHLORIDE [Concomitant]
     Indication: BLOOD PRESSURE MANAGEMENT
     Dosage: UNK
     Route: 042
     Dates: start: 20100501, end: 20100616
  19. ALLOID G [Concomitant]
     Indication: GASTRITIS
     Dosage: 30 ML, 1X/DAY
     Dates: start: 20100502, end: 20100616
  20. PRIMPERAN TAB [Concomitant]
     Indication: NAUSEA
     Dosage: UNK
     Route: 041
     Dates: start: 20100509, end: 20100616
  21. BROACT [Concomitant]
     Indication: SEPSIS
     Dosage: 2 G, 1X/DAY
     Route: 041
     Dates: start: 20100530, end: 20100531
  22. HEPARIN SODIUM [Concomitant]
     Indication: ATRIAL FIBRILLATION
     Dosage: 10000 IU, 1X/DAY
     Route: 041
     Dates: start: 20100530, end: 20100616
  23. DIPRIVAN [Concomitant]
     Indication: SEDATION
     Dosage: 20 MG, 1X/DAY
     Route: 042
     Dates: start: 20100531, end: 20100531
  24. MIDAZOLAM [Concomitant]
     Indication: SEDATION
     Dosage: UNK
     Route: 065
     Dates: start: 20100531, end: 20100607
  25. NORADRENALINE [Concomitant]
     Indication: BLOOD PRESSURE MANAGEMENT
     Dosage: UNK
     Route: 041
     Dates: start: 20100601, end: 20100616
  26. PREDONINE [Concomitant]
     Indication: INTERSTITIAL LUNG DISEASE
     Dosage: UNK
     Route: 041
     Dates: start: 20100603, end: 20100616
  27. ASPARA K [Concomitant]
     Indication: HYPOKALAEMIA
     Dosage: UNK
     Route: 041
     Dates: start: 20100604, end: 20100616

REACTIONS (6)
  - ANAEMIA [None]
  - BONE MARROW FAILURE [None]
  - CARDIAC FAILURE CHRONIC [None]
  - CONDITION AGGRAVATED [None]
  - PLATELET COUNT DECREASED [None]
  - WHITE BLOOD CELL COUNT DECREASED [None]
